FAERS Safety Report 26004535 (Version 1)
Quarter: 2025Q4

REPORT INFORMATION
  Report Type: Spontaneous
  Country: EU (occurrence: EU)
  Receive Date: 20251106
  Receipt Date: 20251106
  Transmission Date: 20260117
  Serious: Yes (Other)
  Sender: AUROBINDO
  Company Number: EU-002147023-NVSC2025NL139671

PATIENT
  Age: 40 Year
  Sex: Male
  Weight: 88 kg

DRUGS (5)
  1. PREDNISOLONE [Suspect]
     Active Substance: PREDNISOLONE
     Indication: Renal transplant
     Dosage: 5 MILLIGRAM
     Route: 065
     Dates: start: 20250607
  2. IPTACOPAN [Suspect]
     Active Substance: IPTACOPAN
     Indication: IgA nephropathy
     Dosage: 400 MILLIGRAM, ONCE A DAY (200 MG, BID (LAST DOSE OF DRUG TAKEN PRIOR TO AE WAS ON 15 JUL 2025))
     Route: 048
     Dates: start: 20250228
  3. IPTACOPAN [Suspect]
     Active Substance: IPTACOPAN
     Indication: Disease recurrence
  4. TACROLIMUS [Suspect]
     Active Substance: TACROLIMUS
     Indication: Renal transplant
     Dosage: 4 MILLIGRAM
     Route: 065
     Dates: start: 20220607
  5. CELLCEPT [Suspect]
     Active Substance: MYCOPHENOLATE MOFETIL
     Indication: Renal transplant
     Dosage: 500 MILLIGRAM
     Route: 065
     Dates: start: 20220607

REACTIONS (4)
  - Erythema [Unknown]
  - Pain in extremity [Unknown]
  - Peripheral swelling [Unknown]
  - Erysipelas [Recovered/Resolved]

NARRATIVE: CASE EVENT DATE: 20250715
